FAERS Safety Report 8919337 (Version 6)
Quarter: 2013Q4

REPORT INFORMATION
  Report Type: Report from Study
  Country: FR (occurrence: FR)
  Receive Date: 20121121
  Receipt Date: 20131025
  Transmission Date: 20140711
  Serious: Yes (Death, Life-Threatening, Hospitalization, Other)
  Sender: FDA-Public Use
  Company Number: FR-UCBSA-071301

PATIENT
  Age: 60 Year
  Sex: Female
  Weight: 68 kg

DRUGS (15)
  1. CIMZIA [Suspect]
     Indication: RHEUMATOID ARTHRITIS
     Dosage: 400 MG-SINGLE INJECTION
     Route: 058
     Dates: start: 20120827, end: 20120827
  2. METOJECT [Concomitant]
     Indication: RHEUMATOID ARTHRITIS
     Dates: start: 2009, end: 20090617
  3. METOJECT [Concomitant]
     Indication: RHEUMATOID ARTHRITIS
     Dates: start: 200906
  4. METOJECT [Concomitant]
     Indication: RHEUMATOID ARTHRITIS
     Dates: end: 20100601
  5. METOJECT [Concomitant]
     Indication: RHEUMATOID ARTHRITIS
     Dates: start: 20100602
  6. SPECIAFOLDINE [Concomitant]
     Route: 048
  7. INIPOMP [Concomitant]
     Dosage: DAILY DOSE:1 UNIT
  8. LEVOTHYROX [Concomitant]
     Indication: HYPOTHYROIDISM
     Dosage: DAILY DOSE:100 MCG
     Route: 048
     Dates: start: 2002
  9. TAHOR [Concomitant]
     Indication: DYSLIPIDAEMIA
     Dosage: DAILY DOSE: 1 UNIT
     Route: 048
  10. LAMALINE [Concomitant]
     Dosage: UNKNOWN DOSE
  11. BIPROFENID [Concomitant]
     Indication: RHEUMATOID ARTHRITIS
     Route: 048
  12. HEPARIN [Concomitant]
  13. CORTANCYL [Concomitant]
     Indication: RHEUMATOID ARTHRITIS
     Dosage: DAILY DOSE  : 4 MG
     Route: 048
  14. CORTANCYL [Concomitant]
     Indication: RHEUMATOID ARTHRITIS
     Dosage: DOSE : 10 MG
     Route: 048
     Dates: start: 20120615, end: 201206
  15. CORTANCYL [Concomitant]
     Indication: RHEUMATOID ARTHRITIS
     Dosage: DAILY DOSE : 10 MG
     Route: 048
     Dates: start: 20120827

REACTIONS (6)
  - Death [Fatal]
  - Subarachnoid haemorrhage [Not Recovered/Not Resolved]
  - Ruptured cerebral aneurysm [Recovered/Resolved with Sequelae]
  - Septic shock [Unknown]
  - Meningitis bacterial [Unknown]
  - Lung infection [Unknown]
